FAERS Safety Report 14452328 (Version 1)
Quarter: 2018Q1

REPORT INFORMATION
  Report Type: Other
  Country: CA (occurrence: CA)
  Receive Date: 20180129
  Receipt Date: 20180129
  Transmission Date: 20180509
  Serious: Yes (Hospitalization)
  Sender: FDA-Public Use
  Company Number: CA-PURDUE PHARMA-CAN-2016-0006412

PATIENT
  Age: 55 Year
  Sex: Female

DRUGS (11)
  1. KETAMINE HYDROCHLORIDE. [Suspect]
     Active Substance: KETAMINE HYDROCHLORIDE
     Indication: PELVIC PAIN
     Dosage: 500 MG, DAILY
     Route: 058
  2. METHADONE [Suspect]
     Active Substance: METHADONE HYDROCHLORIDE
     Dosage: 15 MG, TID
     Route: 065
  3. METHADONE [Suspect]
     Active Substance: METHADONE HYDROCHLORIDE
     Indication: PELVIC PAIN
     Dosage: 12 MG, TID
     Route: 058
  4. HYDROMORPHONE HCL [Suspect]
     Active Substance: HYDROMORPHONE HYDROCHLORIDE
     Dosage: 12.5 MG, UNK
     Route: 058
  5. GABAPENTIN. [Suspect]
     Active Substance: GABAPENTIN
     Indication: PELVIC PAIN
     Dosage: 4 MG, TID
     Route: 048
  6. SUFENTANIL CITRATE. [Suspect]
     Active Substance: SUFENTANIL CITRATE
     Dosage: UNK, TID
     Route: 060
  7. SUFENTANIL CITRATE. [Suspect]
     Active Substance: SUFENTANIL CITRATE
     Dosage: 0.9 UNK, UNK
     Route: 060
  8. HYDROMORPHONE HCL [Suspect]
     Active Substance: HYDROMORPHONE HYDROCHLORIDE
     Dosage: UNK
     Route: 058
  9. HYDROMORPHONE HCL [Suspect]
     Active Substance: HYDROMORPHONE HYDROCHLORIDE
     Dosage: UNK
     Route: 058
  10. HYDROMORPHONE HCL [Suspect]
     Active Substance: HYDROMORPHONE HYDROCHLORIDE
     Indication: PELVIC PAIN
     Dosage: 15 MG, UNK
     Route: 058
  11. SUFENTANIL CITRATE. [Suspect]
     Active Substance: SUFENTANIL CITRATE
     Indication: PELVIC PAIN
     Dosage: 75 MCG, UNK
     Route: 060

REACTIONS (2)
  - Drug ineffective [Recovering/Resolving]
  - Delirium [Recovering/Resolving]
